FAERS Safety Report 5432280-8 (Version None)
Quarter: 2007Q3

REPORT INFORMATION
  Report Type: 
  Country: None (occurrence: None)
  Receive Date: 20070830
  Receipt Date: 20070822
  Transmission Date: 20080115
  Serious: Yes (Other)
  Sender: FDA-Public Use
  Company Number: JP-PFIZER INC-2007070291

PATIENT
  Age: 70 Year
  Sex: Female

DRUGS (3)
  1. SULPERAZON [Suspect]
     Route: 042
     Dates: start: 20061127, end: 20061211
  2. POLYMYXIN B SULFATE [Suspect]
     Route: 048
     Dates: start: 20061201, end: 20061205
  3. VFEND [Suspect]
     Dates: start: 20060727, end: 20060801

REACTIONS (1)
  - LEUKOENCEPHALOPATHY [None]
